FAERS Safety Report 7613045-5 (Version None)
Quarter: 2011Q3

REPORT INFORMATION
  Report Type: 
  Country: None (occurrence: None)
  Receive Date: 20110713
  Receipt Date: 20110509
  Transmission Date: 20111222
  Serious: No
  Sender: FDA-Public Use
  Company Number: US-005339

PATIENT
  Age: 72 Year
  Sex: Male
  Weight: 92.9874 kg

DRUGS (5)
  1. KEFLEX [Suspect]
     Indication: INJECTION SITE CELLULITIS
     Dosage: (500 MG QID), (500 MG TID)
     Dates: start: 20110428
  2. KEFLEX [Suspect]
     Indication: INJECTION SITE CELLULITIS
     Dosage: (500 MG QID), (500 MG TID)
     Dates: start: 20110426
  3. CELEXA [Concomitant]
  4. DEGARELIX (240 MG, 80 MG) [Suspect]
     Indication: PROSTATE CANCER
     Dosage: (240 MG 1X SUBCUTANEOUS), (80 MG 1X/MONTH SUBCUTANEOUS)
     Route: 058
     Dates: start: 20110317
  5. DEGARELIX (240 MG, 80 MG) [Suspect]
     Indication: PROSTATE CANCER
     Dosage: (240 MG 1X SUBCUTANEOUS), (80 MG 1X/MONTH SUBCUTANEOUS)
     Route: 058
     Dates: start: 20110217, end: 20110217

REACTIONS (7)
  - PYREXIA [None]
  - HOT FLUSH [None]
  - INJECTION SITE PAIN [None]
  - DIARRHOEA [None]
  - INJECTION SITE ERYTHEMA [None]
  - INJECTION SITE INDURATION [None]
  - INJECTION SITE CELLULITIS [None]
